FAERS Safety Report 6535497-4 (Version None)
Quarter: 2010Q1

REPORT INFORMATION
  Report Type: 
  Country: None (occurrence: None)
  Receive Date: 20100105
  Receipt Date: 20091221
  Transmission Date: 20100710
  Serious: Yes (Other)
  Sender: FDA-Public Use
  Company Number: 2009023378

PATIENT
  Age: 50 Year
  Sex: Male
  Weight: 81.6 kg

DRUGS (10)
  1. ROGAINE [Suspect]
     Indication: ALOPECIA
     Dosage: 1/2 CAPFUL TWICE A DAY PER DIRECTION, TOPICAL
     Route: 061
     Dates: start: 20090420, end: 20090705
  2. DILTIAZEM [Concomitant]
  3. LISINOPRIL [Concomitant]
  4. LOVASTATIN [Concomitant]
  5. VERAPAMIL [Concomitant]
  6. LABETAOLOL (LABETALOL) [Concomitant]
  7. HYDRALAZINE HCL [Concomitant]
  8. HYDROCHLOROTHIAZIDE [Concomitant]
  9. POTASSIUM CHLORIDE [Concomitant]
  10. ASPIRIN [Concomitant]

REACTIONS (10)
  - ANXIETY [None]
  - BLOOD PRESSURE INCREASED [None]
  - CHEST DISCOMFORT [None]
  - CHOLELITHIASIS [None]
  - DIZZINESS [None]
  - DYSPNOEA [None]
  - FEELING JITTERY [None]
  - HEADACHE [None]
  - HYPERHIDROSIS [None]
  - REFUSAL OF TREATMENT BY PATIENT [None]
